FAERS Safety Report 9258154 (Version 1)
Quarter: 2013Q2

REPORT INFORMATION
  Report Type: Report from Study
  Country: CA (occurrence: CA)
  Receive Date: 20130426
  Receipt Date: 20130426
  Transmission Date: 20140414
  Serious: Yes (Death)
  Sender: FDA-Public Use
  Company Number: CA-ROCHE-1218435

PATIENT
  Age: 60 Year
  Sex: Male

DRUGS (1)
  1. RANIBIZUMAB [Suspect]
     Indication: RETINAL VEIN OCCLUSION
     Route: 050

REACTIONS (1)
  - Lung neoplasm malignant [Fatal]
